FAERS Safety Report 6136447-5 (Version None)
Quarter: 2009Q1

REPORT INFORMATION
  Report Type: 
  Country: None (occurrence: None)
  Receive Date: 20090330
  Receipt Date: 20090324
  Transmission Date: 20090719
  Serious: Yes (Other)
  Sender: FDA-Public Use
  Company Number: US-CELGENEUS-163-20785-09031586

PATIENT
  Sex: Female

DRUGS (1)
  1. THALOMID [Suspect]
     Indication: BONE MARROW TRANSPLANT
     Route: 048
     Dates: start: 20081201

REACTIONS (1)
  - BLOOD HUMAN CHORIONIC GONADOTROPIN INCREASED [None]
